FAERS Safety Report 8839367 (Version 1)
Quarter: 2012Q4

REPORT INFORMATION
  Report Type: Spontaneous
  Country: US (occurrence: None)
  Receive Date: 20121012
  Receipt Date: 20121012
  Transmission Date: 20130627
  Serious: No
  Sender: FDA-Public Use
  Company Number: None

PATIENT
  Sex: Female
  Weight: 98.88 kg

DRUGS (1)
  1. VENLAFAXINE [Suspect]
     Indication: GENERALISED ANXIETY DISORDER
     Dosage: 75-300mg daily oral
     Route: 048
     Dates: start: 201212

REACTIONS (3)
  - Product substitution issue [None]
  - Nausea [None]
  - Vomiting [None]
